FAERS Safety Report 7100270-5 (Version None)
Quarter: 2010Q4

REPORT INFORMATION
  Report Type: 
  Country: None (occurrence: None)
  Receive Date: 20101112
  Receipt Date: 20101030
  Transmission Date: 20110411
  Serious: Yes (Hospitalization, Disabling, Other)
  Sender: FDA-Public Use
  Company Number: PHHY2010US74449

PATIENT
  Sex: Female
  Weight: 87.982 kg

DRUGS (9)
  1. RECLAST [Suspect]
     Indication: OSTEOPOROSIS
     Dosage: UNK
     Route: 042
     Dates: start: 20100914
  2. LETROX [Concomitant]
     Dosage: 1 DF/ DAY
  3. LEXAPRO [Concomitant]
     Dosage: 1 DF/ DAY
  4. LISINOPRIL [Concomitant]
     Dosage: 1 DF/ DAY
  5. OMEPRAZOLE [Concomitant]
     Dosage: 2 DF, UNK
  6. TRAZODONE [Concomitant]
     Dosage: 1 DF, UNK
  7. PROPOXYPHENE HYDROCHLORIDE [Concomitant]
     Dosage: UNK
  8. MULTI-VITAMIN [Concomitant]
  9. CALCIUM WITH VITAMIN D [Concomitant]

REACTIONS (10)
  - BEDRIDDEN [None]
  - BRAIN NATRIURETIC PEPTIDE INCREASED [None]
  - CARDIAC FAILURE [None]
  - CONCOMITANT DISEASE PROGRESSION [None]
  - DYSPNOEA [None]
  - JOINT SWELLING [None]
  - PAIN [None]
  - PAINFUL RESPIRATION [None]
  - PYREXIA [None]
  - QUALITY OF LIFE DECREASED [None]
